FAERS Safety Report 6298609-6 (Version None)
Quarter: 2009Q3

REPORT INFORMATION
  Report Type: 
  Country: None (occurrence: None)
  Receive Date: 20090804
  Receipt Date: 20090721
  Transmission Date: 20100115
  Serious: Yes (Hospitalization)
  Sender: FDA-Public Use
  Company Number: A-NJ2009-24306

PATIENT
  Age: 72 Year
  Sex: Male

DRUGS (18)
  1. TRACLEER [Suspect]
     Indication: PULMONARY ARTERIAL HYPERTENSION
     Dosage: 125 MG, BID, ORAL
     Route: 048
     Dates: start: 20090101
  2. SIMVASTATIN [Concomitant]
  3. PREDNISONE TAB [Concomitant]
  4. FERROUS SULFATE TAB [Concomitant]
  5. CLARITIN [Concomitant]
  6. OMEPRAZOLE [Concomitant]
  7. VITAMIN B12 (COBAMAMIDE) [Concomitant]
  8. PROVENTIL [Concomitant]
  9. TOPROL-XL [Concomitant]
  10. COUMADIN [Concomitant]
  11. CALTRATE (CALCIUM, VITAMIN D NOS) [Concomitant]
  12. FOLIC ACID [Concomitant]
  13. KLOR-CON [Concomitant]
  14. ATIVAN [Concomitant]
  15. SPIRIVA [Concomitant]
  16. LASIX [Concomitant]
  17. AZITHROMYCIN [Concomitant]
  18. CETIRIZINE HCL [Concomitant]

REACTIONS (5)
  - ANAEMIA [None]
  - DYSPNOEA [None]
  - FATIGUE [None]
  - GASTROINTESTINAL HAEMORRHAGE [None]
  - LIVER FUNCTION TEST ABNORMAL [None]
